FAERS Safety Report 7100314-0 (Version None)
Quarter: 2010Q4

REPORT INFORMATION
  Report Type: 
  Country: None (occurrence: None)
  Receive Date: 20101112
  Receipt Date: 20101103
  Transmission Date: 20110411
  Serious: Yes (Other)
  Sender: FDA-Public Use
  Company Number: BR-GENENTECH-308525

PATIENT
  Sex: Male
  Weight: 69 kg

DRUGS (7)
  1. RITUXIMAB [Suspect]
     Indication: WEGENER'S GRANULOMATOSIS
     Dosage: 1000 MG, Q15D
     Route: 050
     Dates: start: 20100319, end: 20101001
  2. PREDNISONE [Suspect]
     Indication: WEGENER'S GRANULOMATOSIS
     Dosage: 60 MG, UNK
     Route: 065
  3. PREDNISONE [Suspect]
     Dosage: 25 MG, UNK
     Route: 065
  4. IMURAN [Concomitant]
     Indication: PRODUCT USED FOR UNKNOWN INDICATION
     Dosage: UNK
  5. BACTRIM-F [Concomitant]
     Indication: PRODUCT USED FOR UNKNOWN INDICATION
     Dosage: UNK
  6. POLARAMINE [Concomitant]
     Indication: PREMEDICATION
     Dosage: UNK
     Dates: start: 20100101
  7. SOLU-MEDROL [Concomitant]
     Indication: PREMEDICATION
     Dosage: UNK
     Dates: start: 20100101

REACTIONS (7)
  - CATARACT [None]
  - DRUG INEFFECTIVE [None]
  - GAIT DISTURBANCE [None]
  - HEADACHE [None]
  - MUSCLE ATROPHY [None]
  - WEGENER'S GRANULOMATOSIS [None]
  - WEIGHT DECREASED [None]
